FAERS Safety Report 9501819 (Version 1)
Quarter: 2013Q1

REPORT INFORMATION
  Report Type: Spontaneous
  Country: US (occurrence: None)
  Receive Date: 20130107
  Receipt Date: 20130107
  Transmission Date: 20140127
  Serious: No
  Sender: FDA-Public Use
  Company Number: PHEH2012US018229

PATIENT
  Age: 35 Year
  Sex: Female
  Weight: 78 kg

DRUGS (11)
  1. GILENYA [Suspect]
     Dosage: 1 DF, DAILY, ORAL
     Route: 048
  2. LUNESTA (ESZOPICLONE) [Concomitant]
  3. ATIVAN (LORAZEPAM) [Concomitant]
  4. MOTRIN (IBUPROFEN) [Concomitant]
  5. VITAMIN D3 (COLECALCIFEROL) [Concomitant]
  6. FISH OIL (FISH OIL) [Concomitant]
  7. COPAXONE (GLATIRAMER ACETATE) [Concomitant]
  8. CYMBALTA (DULOXETINE HYDROCHLORIDE) [Concomitant]
  9. VITAMIN B COMPLEX (CALCIUM PANTOTHENATE, NICOTINAMIDE, PYRIDOXINE HYDROCHLORIDE, RIBOFLAVIN, THIAMINE HYDROCHLORIDE) [Concomitant]
  10. CASTOR OIL (RICINUS COMMUNIS OIL) [Concomitant]
  11. MULTI CAPSULE [Concomitant]

REACTIONS (4)
  - Nausea [None]
  - Myalgia [None]
  - Arthralgia [None]
  - Hepatic enzyme increased [None]
